FAERS Safety Report 9245767 (Version 2)
Quarter: 2013Q2

REPORT INFORMATION
  Report Type: Spontaneous
  Country: US (occurrence: US)
  Receive Date: 20130422
  Receipt Date: 20130516
  Transmission Date: 20140414
  Serious: Yes (Other)
  Sender: FDA-Public Use
  Company Number: US-PFIZER INC-2013122869

PATIENT
  Age: 64 Year
  Sex: Female

DRUGS (2)
  1. EFFEXOR XR [Suspect]
     Dosage: 75 MG, 2X/DAY
     Route: 048
     Dates: start: 20110919
  2. EFFEXOR XR [Suspect]
     Dosage: 150 MG, 2X/DAY
     Route: 048
     Dates: start: 20120627

REACTIONS (1)
  - Hypertension [Unknown]
